FAERS Safety Report 5382733-6 (Version None)
Quarter: 2007Q3

REPORT INFORMATION
  Report Type: 
  Country: None (occurrence: None)
  Receive Date: 20070710
  Receipt Date: 20070703
  Transmission Date: 20080115
  Serious: Yes (Other)
  Sender: FDA-Public Use
  Company Number: GB-AVENTIS-200713276EU

PATIENT
  Age: 23 Year
  Sex: Female
  Weight: 76.4 kg

DRUGS (4)
  1. ENOXAPARIN SODIUM [Suspect]
     Route: 058
     Dates: start: 20070613, end: 20070618
  2. HUMALOG [Concomitant]
     Route: 058
     Dates: start: 19910101
  3. LANTUS [Concomitant]
     Route: 058
     Dates: start: 19910101
  4. FOLIC ACID [Concomitant]

REACTIONS (6)
  - ANAPHYLACTOID SHOCK [None]
  - DRUG EXPOSURE DURING PREGNANCY [None]
  - MALAISE [None]
  - OEDEMA PERIPHERAL [None]
  - RASH [None]
  - SYNCOPE [None]
